FAERS Safety Report 25502001 (Version 1)
Quarter: 2025Q3

REPORT INFORMATION
  Report Type: Spontaneous
  Country: US (occurrence: US)
  Receive Date: 20250702
  Receipt Date: 20250702
  Transmission Date: 20251020
  Serious: Yes (Hospitalization)
  Sender: EMCURE PHARMACEUTICALS LTD
  Company Number: US-AVET LIFESCIENCES LTD-2025-AVET-000214

PATIENT
  Age: 63 Year
  Sex: Male

DRUGS (9)
  1. SERTRALINE HYDROCHLORIDE [Suspect]
     Active Substance: SERTRALINE HYDROCHLORIDE
     Indication: Major depression
     Dosage: 50 MILLIGRAM, 1 DOSE PER 1D
     Route: 065
  2. SERTRALINE HYDROCHLORIDE [Suspect]
     Active Substance: SERTRALINE HYDROCHLORIDE
     Dosage: 25 MILLIGRAM, 1 DOSE PER 1D
     Route: 065
  3. ESCITALOPRAM [Suspect]
     Active Substance: ESCITALOPRAM OXALATE
     Indication: Major depression
  4. LEVOTHYROXINE [Suspect]
     Active Substance: LEVOTHYROXINE
     Indication: Hypothyroidism
     Dosage: 100 MICROGRAM, 1 DOSE PER 1D
     Route: 065
  5. LEVOTHYROXINE [Suspect]
     Active Substance: LEVOTHYROXINE
     Dosage: 75 MCG EVERY MORNING
     Route: 065
  6. LEVOTHYROXINE [Suspect]
     Active Substance: LEVOTHYROXINE
     Dosage: ADVANCING THE LEVOTHYROXINE DOSAGE FROM 75 MCG TO 100 MCG DAILY
     Route: 065
  7. LEVOTHYROXINE [Suspect]
     Active Substance: LEVOTHYROXINE
     Dosage: 112 MICROGRAM, 1 DOSE PER 1D
     Route: 065
  8. TRAZODONE [Concomitant]
     Active Substance: TRAZODONE HYDROCHLORIDE
     Route: 065
  9. ATORVASTATIN [Concomitant]
     Active Substance: ATORVASTATIN
     Indication: Hyperlipidaemia
     Dosage: 20 MILLIGRAM, 1 DOSE PER 1D
     Route: 065

REACTIONS (1)
  - Sinus bradycardia [Recovered/Resolved]
